FAERS Safety Report 4987037-9 (Version None)
Quarter: 2006Q2

REPORT INFORMATION
  Report Type: 
  Country: None (occurrence: None)
  Receive Date: 20060501
  Receipt Date: 20060421
  Transmission Date: 20061013
  Serious: Yes (Other)
  Sender: FDA-Public Use
  Company Number: GXKR2006DE02293

PATIENT
  Age: 51 Year
  Sex: Female
  Weight: 60 kg

DRUGS (4)
  1. VOLTAREN [Suspect]
     Indication: POSTOPERATIVE ANALGESIA
     Dosage: 50 MG, BID
     Route: 054
     Dates: start: 20060401, end: 20060401
  2. EMBOLEX [Suspect]
  3. DULCOLAX [Suspect]
     Dosage: 2 DF, QD
     Route: 054
     Dates: start: 20060401, end: 20060401
  4. CELEBREX [Suspect]
     Indication: PAIN PROPHYLAXIS
     Dosage: 200 MG, QD
     Route: 048
     Dates: start: 20060331, end: 20060331

REACTIONS (5)
  - DIARRHOEA [None]
  - EMBOLISM [None]
  - HEPARIN-INDUCED THROMBOCYTOPENIA [None]
  - PLATELET COUNT DECREASED [None]
  - STOMATITIS [None]
